FAERS Safety Report 10662385 (Version 6)
Quarter: 2015Q2

REPORT INFORMATION
  Report Type: Spontaneous
  Country: DE (occurrence: DE)
  Receive Date: 20141218
  Receipt Date: 20150404
  Transmission Date: 20150821
  Serious: Yes (Life-Threatening, Hospitalization, Other)
  Sender: FDA-Public Use
  Company Number: PHHY2014DE164561

PATIENT
  Age: 46 Year
  Sex: Female
  Weight: 58 kg

DRUGS (2)
  1. GILENYA [Suspect]
     Active Substance: FINGOLIMOD HYDROCHLORIDE
     Dosage: 0.5 MG, QOD
     Route: 048
  2. GILENYA [Suspect]
     Active Substance: FINGOLIMOD HYDROCHLORIDE
     Indication: MULTIPLE SCLEROSIS
     Dosage: 0.5 MG, QD
     Route: 048
     Dates: start: 20130122

REACTIONS (17)
  - Intestinal perforation [Recovered/Resolved with Sequelae]
  - Fear [Unknown]
  - Prescribed underdose [Unknown]
  - Diarrhoea [Unknown]
  - Abdominal tenderness [Recovered/Resolved with Sequelae]
  - C-reactive protein increased [Unknown]
  - Off label use [Unknown]
  - White blood cell count increased [Recovered/Resolved]
  - Pain [Recovered/Resolved with Sequelae]
  - Pneumoperitoneum [Recovered/Resolved with Sequelae]
  - Cough [Unknown]
  - Circulatory collapse [Recovered/Resolved with Sequelae]
  - Procedural complication [Recovered/Resolved with Sequelae]
  - Apparent death [Unknown]
  - Depression [Unknown]
  - Peritonitis bacterial [Recovered/Resolved with Sequelae]
  - Weight decreased [Unknown]

NARRATIVE: CASE EVENT DATE: 20130628
